FAERS Safety Report 21458647 (Version 1)
Quarter: 2022Q4

REPORT INFORMATION
  Report Type: Spontaneous
  Country: US (occurrence: US)
  Receive Date: 20221014
  Receipt Date: 20221014
  Transmission Date: 20230113
  Serious: No
  Sender: FDA-Public Use
  Company Number: US-PFIZER INC-PV202200082789

PATIENT
  Age: 31 Year
  Sex: Female

DRUGS (1)
  1. XELJANZ XR [Suspect]
     Active Substance: TOFACITINIB CITRATE
     Indication: Arthritis enteropathic
     Dosage: 22 MG, 1X/DAY (TAKE 1 TABLET BY MOUTH EVERY DAY)
     Route: 048

REACTIONS (3)
  - Off label use [Unknown]
  - Weight increased [Unknown]
  - Hyperlipidaemia [Unknown]
